FAERS Safety Report 10049582 (Version 2)
Quarter: 2014Q2

REPORT INFORMATION
  Report Type: Report from Study
  Country: VE (occurrence: VE)
  Receive Date: 20140401
  Receipt Date: 20140408
  Transmission Date: 20141212
  Serious: No
  Sender: FDA-Public Use
  Company Number: PHHY2014VE038048

PATIENT
  Age: 65 Year
  Sex: Female

DRUGS (10)
  1. SEBIVO [Suspect]
     Indication: HEPATITIS B
     Dosage: 600 MG, DAILY
     Route: 048
     Dates: start: 201308
  2. SEBIVO [Suspect]
     Indication: HEPATIC CIRRHOSIS
  3. SEBIVO [Suspect]
     Indication: OFF LABEL USE
  4. DIGOXIN [Suspect]
     Indication: CARDIAC FAILURE
     Dosage: 0.25 MG, DAILY
     Route: 048
  5. PRADAXA [Concomitant]
     Indication: COAGULOPATHY
     Dosage: 110 MG, DAILY
  6. CARVEDIOL [Concomitant]
     Dosage: 6.25 MG, DAILY
  7. LASIX [Concomitant]
     Dosage: 40 MG, DAILY
  8. DI-EUDRIN [Concomitant]
     Dosage: 12.5 MG, DAILY
  9. OMEPRAZOLE [Concomitant]
     Dosage: UNK UKN, UNK
  10. ALDACTONE [Concomitant]
     Dosage: UNK UKN, UNK

REACTIONS (6)
  - Hiatus hernia [Not Recovered/Not Resolved]
  - Insomnia [Not Recovered/Not Resolved]
  - Dyspepsia [Not Recovered/Not Resolved]
  - Micturition disorder [Not Recovered/Not Resolved]
  - Flatulence [Not Recovered/Not Resolved]
  - Nausea [Not Recovered/Not Resolved]
